FAERS Safety Report 10866164 (Version 1)
Quarter: 2015Q1

REPORT INFORMATION
  Report Type: Spontaneous
  Country: GB (occurrence: None)
  Receive Date: 20150219
  Receipt Date: 20150219
  Transmission Date: 20150721
  Serious: Yes (Other)
  Sender: FDA-Public Use
  Company Number: FK201500774

PATIENT

DRUGS (2)
  1. METOPROLOL INJECTION [Suspect]
     Active Substance: METOPROLOL
     Indication: HEART RATE
     Dosage: UNKNOWN, EVERY 30 SECONDS FOR HEART RATE OPTIMIZATION BEFORE CORONARY CT ANGIOGRAPHY
  2. NITROGLYCERIN (GLYCERYL TRINITRATE) [Suspect]
     Active Substance: NITROGLYCERIN
     Indication: PRODUCT USED FOR UNKNOWN INDICATION
     Route: 060

REACTIONS (2)
  - Tachycardia [None]
  - Atrioventricular block second degree [None]
